FAERS Safety Report 9665623 (Version 3)
Quarter: 2013Q4

REPORT INFORMATION
  Report Type: Spontaneous
  Country: JP (occurrence: JP)
  Receive Date: 20131104
  Receipt Date: 20131205
  Transmission Date: 20140711
  Serious: Yes (Other)
  Sender: FDA-Public Use
  Company Number: JP-ABBVIE-12P-087-0929483-00

PATIENT
  Age: 67 Year
  Sex: Male
  Weight: 51 kg

DRUGS (5)
  1. LOPINAVIR/RITONAVIR [Suspect]
     Indication: HIV INFECTION
     Dates: start: 2004, end: 2005
  2. LOPINAVIR/RITONAVIR [Suspect]
     Dates: start: 201010, end: 201010
  3. ZIDOVUDINE [Concomitant]
     Indication: HIV INFECTION
     Dates: start: 2004, end: 2005
  4. LAMIVUDINE [Concomitant]
     Indication: HIV INFECTION
     Dates: start: 2004, end: 2005
  5. ABACAVIR W/LAMIVUDINE [Concomitant]
     Indication: HIV INFECTION
     Dates: start: 201010, end: 201010

REACTIONS (2)
  - Sick sinus syndrome [Recovered/Resolved]
  - Abdominal discomfort [Recovered/Resolved]
